FAERS Safety Report 18363997 (Version 1)
Quarter: 2020Q4

REPORT INFORMATION
  Report Type: Spontaneous
  Country: NO (occurrence: NO)
  Receive Date: 20201009
  Receipt Date: 20201009
  Transmission Date: 20210114
  Serious: Yes (Other)
  Sender: FDA-Public Use
  Company Number: NO-TEVA-2020-NO-1836215

PATIENT
  Age: 25 Year
  Sex: Female
  Weight: 62 kg

DRUGS (4)
  1. PREDNISOLON [Suspect]
     Active Substance: PREDNISOLONE
     Indication: SENSORY LOSS
     Dosage: 40 MILLIGRAM DAILY; PATIENT TOOK 2 TABLETS (20 MG) EVERY MORNING, UNIT DOSE : 40 MG
     Dates: start: 20181218, end: 20181223
  2. IRON [Concomitant]
     Active Substance: IRON
  3. PREDNISOLON [Suspect]
     Active Substance: PREDNISOLONE
     Indication: SINUSITIS
  4. LAMICTAL [Concomitant]
     Active Substance: LAMOTRIGINE
     Dates: start: 2016

REACTIONS (2)
  - Bipolar I disorder [Unknown]
  - Insomnia [Recovered/Resolved]

NARRATIVE: CASE EVENT DATE: 20181218
